FAERS Safety Report 5299960-9 (Version None)
Quarter: 2007Q2

REPORT INFORMATION
  Report Type: 
  Country: None (occurrence: None)
  Receive Date: 20070410
  Receipt Date: 19981002
  Transmission Date: 20071010
  Serious: Yes (Congenital Anomaly)
  Sender: FDA-Public Use
  Company Number: B0465080A

PATIENT
  Sex: Male

DRUGS (2)
  1. IMITREX [Suspect]
     Indication: MIGRAINE WITHOUT AURA
     Dosage: UNK / UNKNOWN / TRANSPLACENTARY
     Route: 064
  2. CLOMIPRAMINE HCL [Concomitant]

REACTIONS (6)
  - CAESAREAN SECTION [None]
  - DRUG EXPOSURE DURING PREGNANCY [None]
  - IRRITABILITY [None]
  - NEONATAL DISORDER [None]
  - POLYDACTYLY [None]
  - PREMATURE BABY [None]
